FAERS Safety Report 11037694 (Version 1)
Quarter: 2015Q2

REPORT INFORMATION
  Report Type: Spontaneous
  Country: US (occurrence: US)
  Receive Date: 20150416
  Receipt Date: 20150416
  Transmission Date: 20150821
  Serious: Yes (Death)
  Sender: FDA-Public Use
  Company Number: US-FRI-1000075188

PATIENT
  Age: 72 Year
  Sex: Female

DRUGS (11)
  1. SIMVASTATIN. [Concomitant]
     Active Substance: SIMVASTATIN
  2. ATORVASTATIN [Concomitant]
     Active Substance: ATORVASTATIN
  3. ERGOCALCIFEROL. [Concomitant]
     Active Substance: ERGOCALCIFEROL
  4. NAMENDA [Suspect]
     Active Substance: MEMANTINE HYDROCHLORIDE
     Dosage: 10 MG
  5. VITAMIN B COMPLEX [Concomitant]
     Active Substance: CYANOCOBALAMIN\DEXPANTHENOL\NIACINAMIDE\PYRIDOXINE HYDROCHLORIDE\RIBOFLAVIN 5^-PHOSPHATE SODIUM\THIAMINE HYDROCHLORIDE\VITAMIN B COMPLEX
  6. RIVASTIGMINE [Concomitant]
     Active Substance: RIVASTIGMINE
  7. INSULIN GLARGINE [Concomitant]
     Active Substance: INSULIN GLARGINE
  8. NAMENDA XR [Suspect]
     Active Substance: MEMANTINE HYDROCHLORIDE
     Indication: DEMENTIA ALZHEIMER^S TYPE
     Dosage: 21 MG
     Dates: start: 20150205, end: 20150308
  9. GLIBENCLAMIDE [Concomitant]
     Active Substance: GLYBURIDE
  10. NAMENDA [Suspect]
     Active Substance: MEMANTINE HYDROCHLORIDE
     Indication: DEMENTIA ALZHEIMER^S TYPE
     Dosage: 10 MG
     Dates: start: 20150308
  11. VALSARTAN. [Concomitant]
     Active Substance: VALSARTAN

REACTIONS (8)
  - Diarrhoea [Not Recovered/Not Resolved]
  - Faecal incontinence [Recovering/Resolving]
  - Restlessness [Not Recovered/Not Resolved]
  - Urinary incontinence [Recovering/Resolving]
  - Cardiac arrest [Fatal]
  - Repetitive speech [Recovering/Resolving]
  - Insomnia [Not Recovered/Not Resolved]
  - Agoraphobia [Not Recovered/Not Resolved]

NARRATIVE: CASE EVENT DATE: 201503
